FAERS Safety Report 7586304-2 (Version None)
Quarter: 2011Q2

REPORT INFORMATION
  Report Type: 
  Country: None (occurrence: None)
  Receive Date: 20110630
  Receipt Date: 20110630
  Transmission Date: 20111010
  Serious: Yes (Death, Hospitalization)
  Sender: FDA-Public Use
  Company Number: None

PATIENT
  Sex: Female
  Weight: 55.3 kg

DRUGS (2)
  1. CARBOPLATIN [Suspect]
     Dosage: 485 MG
     Dates: end: 20110324
  2. PACLITAXEL [Suspect]
     Dosage: 405 MG
     Dates: end: 20110407

REACTIONS (11)
  - UNRESPONSIVE TO STIMULI [None]
  - CULTURE URINE POSITIVE [None]
  - VENTRICULAR FIBRILLATION [None]
  - SEPTIC SHOCK [None]
  - CLOSTRIDIAL INFECTION [None]
  - DIARRHOEA [None]
  - NEUTROPHIL COUNT DECREASED [None]
  - ASTHENIA [None]
  - CARDIAC ARREST [None]
  - GENERAL PHYSICAL HEALTH DETERIORATION [None]
  - HYPOXIC-ISCHAEMIC ENCEPHALOPATHY [None]
